FAERS Safety Report 6665101-6 (Version None)
Quarter: 2010Q2

REPORT INFORMATION
  Report Type: 
  Country: None (occurrence: None)
  Receive Date: 20100402
  Receipt Date: 20100325
  Transmission Date: 20101027
  Serious: No
  Sender: FDA-Public Use
  Company Number: 2009BI034205

PATIENT
  Sex: Female

DRUGS (2)
  1. TYSABRI [Suspect]
     Indication: MULTIPLE SCLEROSIS
     Route: 042
     Dates: start: 20090723, end: 20090801
  2. TYSABRI [Suspect]
     Route: 042
     Dates: start: 20100301

REACTIONS (3)
  - MAMMOPLASTY [None]
  - POOR VENOUS ACCESS [None]
  - SUTURE RUPTURE [None]
